FAERS Safety Report 21221531 (Version 4)
Quarter: 2023Q4

REPORT INFORMATION
  Report Type: Spontaneous
  Country: FR (occurrence: FR)
  Receive Date: 20220817
  Receipt Date: 20231118
  Transmission Date: 20240109
  Serious: Yes (Hospitalization, Other)
  Sender: FDA-Public Use
  Company Number: FR-RECORDATI-2022002062

PATIENT
  Age: 67 Year
  Sex: Male
  Weight: 115 kg

DRUGS (5)
  1. OXYCODONE [Suspect]
     Active Substance: OXYCODONE
     Indication: Cancer pain
     Dosage: 5 MILLIGRAM, ONCE A DAY(5 MILLIGRAM, QD)
     Route: 042
     Dates: start: 20220505
  2. OXYCODONE [Suspect]
     Active Substance: OXYCODONE
     Dosage: 40 MILLIGRAM, ONCE A DAY(40 MILLIGRAM, QD)
     Route: 042
     Dates: start: 20220506, end: 20220514
  3. MORPHINE [Suspect]
     Active Substance: MORPHINE
     Indication: Cancer pain
     Dosage: 10 MILLIGRAM, ONCE A DAY(10 MILLIGRAM, QD)
     Route: 042
     Dates: start: 20220513
  4. MORPHINE [Suspect]
     Active Substance: MORPHINE
     Dosage: UNK
     Route: 042
     Dates: start: 20220504, end: 20220508
  5. METHADONE HYDROCHLORIDE [Suspect]
     Active Substance: METHADONE HYDROCHLORIDE
     Indication: Cancer pain
     Dosage: 15 MILLIGRAM, ONCE A DAY(15 MILLIGRAM, QD)
     Route: 065
     Dates: start: 20220513

REACTIONS (5)
  - Radius fracture [Not Recovered/Not Resolved]
  - Hallucination [Recovered/Resolved]
  - Constipation [Not Recovered/Not Resolved]
  - Myoclonus [Recovered/Resolved]
  - Somnolence [Recovered/Resolved]

NARRATIVE: CASE EVENT DATE: 20220502
